FAERS Safety Report 20388029 (Version 1)
Quarter: 2022Q1

REPORT INFORMATION
  Report Type: Spontaneous
  Country: US (occurrence: US)
  Receive Date: 20220128
  Receipt Date: 20220128
  Transmission Date: 20220423
  Serious: No
  Sender: FDA-Public Use
  Company Number: US-UNITED THERAPEUTICS-UNT-2021-024842

PATIENT
  Sex: Male
  Weight: 79.365 kg

DRUGS (7)
  1. TYVASO [Suspect]
     Active Substance: TREPROSTINIL
     Indication: Pulmonary arterial hypertension
     Dosage: UNK
     Dates: start: 20211116
  2. TYVASO [Suspect]
     Active Substance: TREPROSTINIL
     Dosage: 18-72 ?G, QID
     Dates: start: 2021
  3. TYVASO [Suspect]
     Active Substance: TREPROSTINIL
     Dosage: UNK
     Dates: start: 2021
  4. TYVASO [Suspect]
     Active Substance: TREPROSTINIL
     Dosage: 42 ?G
     Dates: start: 2021
  5. TYVASO [Suspect]
     Active Substance: TREPROSTINIL
     Dosage: UNK
  6. CARDIZEM [Suspect]
     Active Substance: DILTIAZEM HYDROCHLORIDE
     Indication: Product used for unknown indication
     Dosage: UNK
     Route: 065
  7. WARFARIN SODIUM [Concomitant]
     Active Substance: WARFARIN SODIUM
     Indication: Product used for unknown indication
     Dosage: UNK
     Route: 065

REACTIONS (6)
  - Productive cough [Unknown]
  - Hypotension [Recovering/Resolving]
  - Headache [Recovering/Resolving]
  - Fatigue [Recovering/Resolving]
  - Sputum discoloured [Recovering/Resolving]
  - Chest discomfort [Unknown]

NARRATIVE: CASE EVENT DATE: 20210101
